FAERS Safety Report 18045807 (Version 1)
Quarter: 2020Q3

REPORT INFORMATION
  Report Type: Report from Study
  Country: None (occurrence: IT)
  Receive Date: 20200720
  Receipt Date: 20200720
  Transmission Date: 20201103
  Serious: Yes (Other)
  Sender: FDA-Public Use
  Company Number: IT-ABBVIE-20K-083-3488906-00

PATIENT
  Age: 61 Year

DRUGS (1)
  1. VENCLEXTA [Suspect]
     Active Substance: VENETOCLAX
     Indication: PROLYMPHOCYTIC LEUKAEMIA
     Route: 048
     Dates: start: 20200417

REACTIONS (2)
  - Disease progression [Unknown]
  - Off label use [Unknown]

NARRATIVE: CASE EVENT DATE: 20200417
